FAERS Safety Report 25628539 (Version 1)
Quarter: 2025Q3

REPORT INFORMATION
  Report Type: Spontaneous
  Country: US (occurrence: US)
  Receive Date: 20250731
  Receipt Date: 20250731
  Transmission Date: 20251021
  Serious: No
  Sender: BAYER HEALTHCARE LLC
  Company Number: US-BAYER-2025A101608

PATIENT
  Sex: Female

DRUGS (2)
  1. ALEVE [Suspect]
     Active Substance: NAPROXEN SODIUM
     Indication: Arthritis
  2. ALEVE [Suspect]
     Active Substance: NAPROXEN SODIUM
     Indication: Skin burning sensation

REACTIONS (1)
  - Drug ineffective for unapproved indication [Unknown]
